FAERS Safety Report 6247017-2 (Version None)
Quarter: 2009Q2

REPORT INFORMATION
  Report Type: 
  Country: None (occurrence: None)
  Receive Date: 20090626
  Receipt Date: 20090622
  Transmission Date: 20091009
  Serious: Yes (Hospitalization)
  Sender: FDA-Public Use
  Company Number: SE-BAYER-200923821GPV

PATIENT

DRUGS (2)
  1. NEXAVAR [Suspect]
     Indication: HEPATIC NEOPLASM MALIGNANT
     Dates: start: 20090119
  2. CYCLOSPORINE [Concomitant]
     Indication: LIVER TRANSPLANT

REACTIONS (4)
  - BLOOD UREA INCREASED [None]
  - DEHYDRATION [None]
  - METABOLIC ACIDOSIS [None]
  - PNEUMONIA [None]
